FAERS Safety Report 25183229 (Version 3)
Quarter: 2025Q2

REPORT INFORMATION
  Report Type: Spontaneous
  Country: US (occurrence: US)
  Receive Date: 20250410
  Receipt Date: 20250523
  Transmission Date: 20250717
  Serious: Yes (Hospitalization)
  Sender: DR REDDYS
  Company Number: US-DRL-USA-USA/2025/04/005172

PATIENT
  Age: 59 Year
  Sex: Male
  Weight: 138.34 kg

DRUGS (4)
  1. ICOSAPENT ETHYL [Suspect]
     Active Substance: ICOSAPENT ETHYL
     Indication: Blood cholesterol
     Route: 048
     Dates: start: 20250225, end: 20250331
  2. MOUNJARO [Suspect]
     Active Substance: TIRZEPATIDE
     Indication: Product used for unknown indication
     Route: 065
  3. ZETIA [Concomitant]
     Active Substance: EZETIMIBE
     Indication: Hyperlipidaemia
     Dosage: BEEN TAKING FOR THREE OR FOUR YEARS
  4. LISINOPRIL [Concomitant]
     Active Substance: LISINOPRIL
     Indication: Blood cholesterol
     Dosage: BEEN TAKING FOR TEN YEARS

REACTIONS (2)
  - Oral pain [Recovering/Resolving]
  - Dysgeusia [Recovering/Resolving]

NARRATIVE: CASE EVENT DATE: 20250225
